FAERS Safety Report 19035492 (Version 1)
Quarter: 2021Q1

REPORT INFORMATION
  Report Type: Report from Study
  Country: DE (occurrence: DE)
  Receive Date: 20210320
  Receipt Date: 20210320
  Transmission Date: 20210420
  Serious: Yes (Hospitalization)
  Sender: FDA-Public Use
  Company Number: DE-SHIRE-DE201814064

PATIENT

DRUGS (19)
  1. TEDUGLUTIDE [Suspect]
     Active Substance: TEDUGLUTIDE
     Indication: SHORT-BOWEL SYNDROME
     Dosage: 1.9 MG, 1X/WEEK
     Route: 065
     Dates: start: 20170511, end: 201711
  2. TEDUGLUTIDE [Suspect]
     Active Substance: TEDUGLUTIDE
     Indication: SHORT-BOWEL SYNDROME
     Dosage: 1.9 MG, 1X/WEEK
     Route: 065
     Dates: start: 20170511, end: 201711
  3. TEDUGLUTIDE [Suspect]
     Active Substance: TEDUGLUTIDE
     Dosage: 1.9 MG, 1X/WEEK
     Route: 065
     Dates: start: 20171201
  4. ALFACALCIDOL [Concomitant]
     Active Substance: ALFACALCIDOL
     Indication: HYPOCALCAEMIA
  5. TEDUGLUTIDE [Suspect]
     Active Substance: TEDUGLUTIDE
     Dosage: 1.9 MG, 1X/WEEK
     Route: 065
     Dates: start: 20171201
  6. TEDUGLUTIDE [Suspect]
     Active Substance: TEDUGLUTIDE
     Dosage: 1.9 MG, 1X/WEEK
     Route: 065
     Dates: start: 20170511, end: 201711
  7. PHOSPHATE [Concomitant]
     Active Substance: UNSPECIFIED INGREDIENT
     Indication: HYPERPHOSPHATAEMIA
  8. TEDUGLUTIDE [Suspect]
     Active Substance: TEDUGLUTIDE
     Dosage: 1.9 MG, 1X/WEEK
     Route: 065
     Dates: start: 20170511, end: 201711
  9. TEDUGLUTIDE [Suspect]
     Active Substance: TEDUGLUTIDE
     Dosage: 1.9 MG, 1X/WEEK
     Route: 065
     Dates: start: 20171201
  10. TEDUGLUTIDE [Suspect]
     Active Substance: TEDUGLUTIDE
     Indication: SHORT-BOWEL SYNDROME
     Dosage: 1.9 MG, 1X/WEEK
     Route: 065
     Dates: start: 20170511, end: 201711
  11. TEDUGLUTIDE [Suspect]
     Active Substance: TEDUGLUTIDE
     Dosage: 1.9 MG, 1X/WEEK
     Route: 065
     Dates: start: 20171201
  12. TEDUGLUTIDE [Suspect]
     Active Substance: TEDUGLUTIDE
     Dosage: 1.9 MG, 1X/WEEK
     Route: 065
     Dates: start: 20171201
  13. TEDUGLUTIDE [Suspect]
     Active Substance: TEDUGLUTIDE
     Dosage: 1.9 MG, 1X/WEEK
     Route: 065
     Dates: start: 20170511, end: 201711
  14. TEDUGLUTIDE [Suspect]
     Active Substance: TEDUGLUTIDE
     Dosage: 1.9 MG, 1X/WEEK
     Route: 065
     Dates: start: 20171201
  15. BICANORM [Concomitant]
     Active Substance: SODIUM BICARBONATE
     Indication: ILL-DEFINED DISORDER
  16. TEDUGLUTIDE [Suspect]
     Active Substance: TEDUGLUTIDE
     Indication: SHORT-BOWEL SYNDROME
     Dosage: 1.9 MG, 1X/WEEK
     Route: 065
     Dates: start: 20170511, end: 201711
  17. TEDUGLUTIDE [Suspect]
     Active Substance: TEDUGLUTIDE
     Dosage: 1.9 MG, 1X/WEEK
     Route: 065
     Dates: start: 20171201
  18. TEDUGLUTIDE [Suspect]
     Active Substance: TEDUGLUTIDE
     Dosage: 1.9 MG, 1X/WEEK
     Route: 065
     Dates: start: 20170511, end: 201711
  19. TEDUGLUTIDE [Suspect]
     Active Substance: TEDUGLUTIDE
     Dosage: 1.9 MG, 1X/WEEK
     Route: 065
     Dates: start: 20171201

REACTIONS (3)
  - Deep vein thrombosis [Recovered/Resolved with Sequelae]
  - Device malfunction [Recovered/Resolved]
  - Iatrogenic injury [Recovered/Resolved]

NARRATIVE: CASE EVENT DATE: 201803
